FAERS Safety Report 22868599 (Version 4)
Quarter: 2024Q1

REPORT INFORMATION
  Report Type: Report from Study
  Country: US (occurrence: US)
  Receive Date: 20230825
  Receipt Date: 20240306
  Transmission Date: 20240410
  Serious: Yes (Life-Threatening)
  Sender: FDA-Public Use
  Company Number: US-002147023-NVSC2023US185593

PATIENT
  Sex: Female

DRUGS (3)
  1. ENTRESTO [Suspect]
     Active Substance: SACUBITRIL\VALSARTAN
     Indication: Product used for unknown indication
     Dosage: UNK
     Route: 065
  2. ENTRESTO [Suspect]
     Active Substance: SACUBITRIL\VALSARTAN
     Dosage: UNK, BID (1/2 TAB BID)
     Route: 065
     Dates: start: 202305
  3. ENTRESTO [Suspect]
     Active Substance: SACUBITRIL\VALSARTAN
     Dosage: UNK
     Route: 065

REACTIONS (8)
  - Near death experience [Unknown]
  - Depression [Unknown]
  - Limb discomfort [Unknown]
  - Weight decreased [Unknown]
  - Dizziness [Recovered/Resolved]
  - Vertigo [Unknown]
  - Fatigue [Unknown]
  - Wrong technique in product usage process [Unknown]
